FAERS Safety Report 14978413 (Version 1)
Quarter: 2018Q2

REPORT INFORMATION
  Report Type: Spontaneous
  Country: PT (occurrence: PT)
  Receive Date: 20180606
  Receipt Date: 20180606
  Transmission Date: 20180711
  Serious: Yes (Hospitalization)
  Sender: FDA-Public Use
  Company Number: PT-CONCORDIA PHARMACEUTICALS INC.-E2B_00012182

PATIENT
  Age: 15 Year
  Sex: Female

DRUGS (14)
  1. AZATHIOPRINE. [Suspect]
     Active Substance: AZATHIOPRINE
     Indication: LUPUS NEPHRITIS
     Dosage: UNK
     Route: 048
     Dates: end: 200602
  2. METHYLPREDNISOLONE. [Suspect]
     Active Substance: METHYLPREDNISOLONE
     Indication: LUPUS NEPHRITIS
     Dosage: 1 G, UNK (3 DOSES)
     Route: 050
     Dates: start: 2004
  3. IMMUNOGLOBULIN (IMMUNOGLOBULIN HUMAN NORMAL) [Concomitant]
     Active Substance: HUMAN IMMUNOGLOBULIN G
     Dosage: 2 G/KG, UNK
  4. PREDNISOLONE. [Suspect]
     Active Substance: PREDNISOLONE
     Dosage: 45 MG, QD (1.4 MG/KG/DAY)
     Route: 048
  5. CYCLOPHOSPHAMIDE. [Suspect]
     Active Substance: CYCLOPHOSPHAMIDE
     Dosage: 0.5 G/M2, UNK (CUMULATIVE DOSE OF 6.1 G/M2)
     Route: 050
     Dates: start: 2004
  6. PREDNISOLONE. [Suspect]
     Active Substance: PREDNISOLONE
     Indication: LUPUS NEPHRITIS
     Dosage: 1 MG/KG, QD
     Route: 048
  7. HYDROCORTICONE [Suspect]
     Active Substance: HYDROCORTISONE
     Indication: LUPUS NEPHRITIS
     Dosage: UNK
     Route: 065
     Dates: start: 200702
  8. CYCLOPHOSPHAMIDE. [Suspect]
     Active Substance: CYCLOPHOSPHAMIDE
     Dosage: 1 G/M2, QMO
     Route: 050
  9. RITUXIMAB. [Suspect]
     Active Substance: RITUXIMAB
     Indication: LUPUS NEPHRITIS
     Dosage: 375 MG/M2, UNK (FOUR WEEKLY)
     Route: 050
     Dates: start: 200702
  10. MYCOPHENOLATE MOFETIL. [Suspect]
     Active Substance: MYCOPHENOLATE MOFETIL
     Indication: LUPUS NEPHRITIS
     Dosage: 500 MG, QD
     Route: 065
     Dates: start: 2006
  11. ACETAMINOPHEN. [Concomitant]
     Active Substance: ACETAMINOPHEN
     Indication: PRODUCT USED FOR UNKNOWN INDICATION
     Dosage: UNK
     Route: 065
     Dates: start: 200702
  12. PREDNISOLONE. [Suspect]
     Active Substance: PREDNISOLONE
     Dosage: 40 MG, QD
     Route: 048
     Dates: start: 2004
  13. CYCLOPHOSPHAMIDE. [Suspect]
     Active Substance: CYCLOPHOSPHAMIDE
     Indication: LUPUS NEPHRITIS
     Dosage: 600 MG/M2, UNK (CUMULATIVE DOSAGE: 5.6 G/M2) (6 MONTHLY AND 4 TRIMONTHLY)
     Route: 050
  14. IMMUNOGLOBULIN (IMMUNOGLOBULIN HUMAN NORMAL) [Concomitant]
     Active Substance: HUMAN IMMUNOGLOBULIN G
     Indication: PRODUCT USED FOR UNKNOWN INDICATION
     Dosage: 1.5 G/KG, UNK
     Route: 042

REACTIONS (6)
  - Corynebacterium infection [Recovered/Resolved]
  - Vomiting [Unknown]
  - Nausea [Unknown]
  - Rash [Unknown]
  - Upper respiratory tract infection [Unknown]
  - Peritonitis [Recovered/Resolved]
